FAERS Safety Report 7746000-5 (Version None)
Quarter: 2011Q3

REPORT INFORMATION
  Report Type: 
  Country: None (occurrence: None)
  Receive Date: 20110908
  Receipt Date: 20110824
  Transmission Date: 20111222
  Serious: Yes (Hospitalization)
  Sender: FDA-Public Use
  Company Number: TCI2011A04516

PATIENT
  Age: 54 Year
  Sex: Male

DRUGS (1)
  1. LANSAP 800 (LANSOPRAZOLE, CLARITHROMYCIN, AMOXICLLIN) [Suspect]
     Indication: HELICOBACTER INFECTION
     Dosage: 1 CARD (0.5 CARD, 2 IN 1D)
     Route: 048
     Dates: start: 20110608, end: 20110614

REACTIONS (2)
  - ERYTHEMA MULTIFORME [None]
  - ABNORMAL SENSATION IN EYE [None]
